FAERS Safety Report 24827669 (Version 1)
Quarter: 2025Q1

REPORT INFORMATION
  Report Type: Spontaneous
  Country: CN (occurrence: CN)
  Receive Date: 20250109
  Receipt Date: 20250109
  Transmission Date: 20250409
  Serious: Yes (Other)
  Sender: JAZZ
  Company Number: CN-PHARMAMAR-2024PM001037

PATIENT
  Age: 73 Year
  Sex: Male
  Weight: 66 kg

DRUGS (4)
  1. ZEPZELCA [Suspect]
     Active Substance: LURBINECTEDIN
     Indication: Lung neoplasm malignant
     Dosage: 4 MILLIGRAM, Q3W, DAY 1
     Route: 042
     Dates: start: 20241112, end: 20241112
  2. RIVAROXABAN [Concomitant]
     Active Substance: RIVAROXABAN
     Indication: Anticoagulant therapy
     Dosage: 10 MILLIGRAM, QD
     Route: 048
     Dates: start: 20241108, end: 20241116
  3. ALUMINUM MAGNESIUM HYDRATE [Concomitant]
     Indication: Anticoagulant therapy
     Dosage: 1 DOSAGE FORM, QD
     Route: 048
     Dates: start: 20241105, end: 20241118
  4. GLUCOSA 5% MEDICINE [Concomitant]
     Indication: Vehicle solution use
     Dosage: 250 MILLILITER, QD
     Route: 048
     Dates: start: 20241112, end: 20241112

REACTIONS (1)
  - Myelosuppression [Recovering/Resolving]

NARRATIVE: CASE EVENT DATE: 20241118
